FAERS Safety Report 5361478-2 (Version None)
Quarter: 2007Q2

REPORT INFORMATION
  Report Type: 
  Country: None (occurrence: None)
  Receive Date: 20070619
  Receipt Date: 20070612
  Transmission Date: 20071010
  Serious: Yes (Disabling, Other)
  Sender: FDA-Public Use
  Company Number: AUWYE076519MAR07

PATIENT
  Sex: Female

DRUGS (3)
  1. EFFEXOR XR [Suspect]
     Dosage: 37.5 MG, FREQUENCY UNKNOWN
     Route: 048
     Dates: end: 20070201
  2. EFFEXOR XR [Suspect]
     Dosage: UNKNOWN
     Route: 048
  3. EFFEXOR XR [Suspect]
     Dosage: 37.5 MG, FREQUENCY UNKNOWN
     Route: 048
     Dates: start: 20070101

REACTIONS (2)
  - CEREBROVASCULAR ACCIDENT [None]
  - DRUG WITHDRAWAL SYNDROME [None]
